FAERS Safety Report 6210121-9 (Version None)
Quarter: 2009Q2

REPORT INFORMATION
  Report Type: 
  Country: None (occurrence: None)
  Receive Date: 20090601
  Receipt Date: 20090520
  Transmission Date: 20091009
  Serious: Yes (Other)
  Sender: FDA-Public Use
  Company Number: US-BIOGENIDEC-2005BI011079

PATIENT
  Sex: Female
  Weight: 79 kg

DRUGS (4)
  1. AVONEX [Suspect]
     Indication: MULTIPLE SCLEROSIS
     Route: 030
     Dates: start: 19981116, end: 20030101
  2. AVONEX [Suspect]
     Route: 030
     Dates: start: 20030101, end: 20061101
  3. AVONEX [Suspect]
     Route: 030
     Dates: start: 20070307, end: 20071107
  4. AVONEX [Suspect]
     Route: 030
     Dates: start: 20080227

REACTIONS (20)
  - AMNESIA [None]
  - BASAL CELL CARCINOMA [None]
  - COUGH [None]
  - DENTAL CARIES [None]
  - DEPRESSED MOOD [None]
  - DYSPEPSIA [None]
  - ECZEMA [None]
  - FALL [None]
  - FATIGUE [None]
  - GAIT DISTURBANCE [None]
  - HYPERTENSION [None]
  - INSOMNIA [None]
  - MUSCULOSKELETAL STIFFNESS [None]
  - NEOPLASM MALIGNANT [None]
  - POST PROCEDURAL SWELLING [None]
  - PUPILLARY DISORDER [None]
  - REACTION TO PRESERVATIVES [None]
  - SKIN CANCER [None]
  - SYSTEMIC LUPUS ERYTHEMATOSUS [None]
  - TOOTH DISORDER [None]
